FAERS Safety Report 9808331 (Version 2)
Quarter: 2014Q1

REPORT INFORMATION
  Report Type: Spontaneous
  Country: DE (occurrence: DE)
  Receive Date: 20140110
  Receipt Date: 20140224
  Transmission Date: 20141002
  Serious: Yes (Disabling, Other)
  Sender: FDA-Public Use
  Company Number: DE-TEVA-454292GER

PATIENT
  Age: 66 Year
  Sex: Female

DRUGS (7)
  1. CLARITHROMYCIN CT [Suspect]
     Indication: LYME DISEASE
     Dosage: 1000 MILLIGRAM DAILY;
     Route: 048
     Dates: start: 20090703, end: 20090724
  2. MINOCYCLIN [Concomitant]
     Indication: LYME DISEASE
     Dosage: 200 MILLIGRAM DAILY;
     Route: 048
     Dates: start: 20090831, end: 20091002
  3. ARLEVERT [Concomitant]
     Indication: DIZZINESS
     Route: 048
     Dates: start: 20100520, end: 20100525
  4. MYOSON DIREKT [Concomitant]
     Indication: MYALGIA
     Route: 048
     Dates: start: 20100618, end: 20100627
  5. CIRCADIN [Concomitant]
     Indication: INSOMNIA
     Route: 048
     Dates: start: 20101123, end: 20101126
  6. BISOPROLOL [Concomitant]
     Route: 048
  7. LAFAMME 2/2 MG [Concomitant]
     Route: 048

REACTIONS (9)
  - Diarrhoea [Recovered/Resolved]
  - Dizziness [Recovered/Resolved]
  - Dizziness [Recovered/Resolved]
  - Dysgeusia [Recovered/Resolved with Sequelae]
  - Glossitis [Recovered/Resolved with Sequelae]
  - Headache [Not Recovered/Not Resolved]
  - Palpitations [Recovered/Resolved]
  - Sleep disorder [Recovered/Resolved]
  - Toothache [Recovered/Resolved]
